FAERS Safety Report 7333417-6 (Version None)
Quarter: 2011Q1

REPORT INFORMATION
  Report Type: 
  Country: None (occurrence: None)
  Receive Date: 20110304
  Receipt Date: 20110218
  Transmission Date: 20110831
  Serious: Yes (Death)
  Sender: FDA-Public Use
  Company Number: US-CELGENEUS-163-21880-10121235

PATIENT
  Sex: Female

DRUGS (7)
  1. OXYCODONE [Concomitant]
     Route: 065
  2. AMITRIPTYLINE [Concomitant]
     Route: 065
  3. OXYCONTIN [Concomitant]
     Dosage: 10 MILLIGRAM
     Route: 048
  4. PREMPRO [Concomitant]
     Dosage: 0.625-5
     Route: 048
  5. REVLIMID [Suspect]
     Indication: MULTIPLE MYELOMA
     Dosage: 15 MILLIGRAM
     Route: 048
     Dates: start: 20100801, end: 20100101
  6. SULFAMETHOXAZOLE/TRIMETHOPRIM [Concomitant]
     Route: 065
  7. ACYCLOVIR [Concomitant]
     Dosage: 200 MILLIGRAM
     Route: 048

REACTIONS (1)
  - MULTIPLE MYELOMA [None]
